FAERS Safety Report 12785359 (Version 1)
Quarter: 2016Q3

REPORT INFORMATION
  Report Type: Spontaneous
  Country: US (occurrence: US)
  Receive Date: 20160927
  Receipt Date: 20160927
  Transmission Date: 20161109
  Serious: No
  Sender: FDA-Public Use
  Company Number: US-FRI-1000082567

PATIENT
  Age: 53 Year
  Sex: Female
  Weight: 81.6 kg

DRUGS (3)
  1. CLOZAPAM [Concomitant]
     Indication: MENTAL DISORDER
     Dosage: UNK
     Route: 048
  2. CLONAPIN [Concomitant]
     Active Substance: CLONAZEPAM
     Indication: MENTAL DISORDER
     Dosage: UNK
     Route: 048
  3. LINZESS [Suspect]
     Active Substance: LINACLOTIDE
     Indication: IRRITABLE BOWEL SYNDROME
     Dosage: 290 ?G, QD
     Route: 048
     Dates: start: 20160116, end: 20160203

REACTIONS (2)
  - Morbid thoughts [Unknown]
  - Abdominal pain [Not Recovered/Not Resolved]

NARRATIVE: CASE EVENT DATE: 20160202
